FAERS Safety Report 9007103 (Version 2)
Quarter: 2013Q1

REPORT INFORMATION
  Report Type: Report from Study
  Country: FR (occurrence: FR)
  Receive Date: 20130110
  Receipt Date: 20130122
  Transmission Date: 20140127
  Serious: Yes (Hospitalization)
  Sender: FDA-Public Use
  Company Number: FR-SANOFI-AVENTIS-2013SA001060

PATIENT
  Age: 33 Year
  Sex: Male
  Weight: 80 kg

DRUGS (7)
  1. CABAZITAXEL [Suspect]
     Indication: HEAD AND NECK CANCER
     Route: 042
     Dates: start: 20121228, end: 20121228
  2. SOLUPRED [Concomitant]
     Indication: STEROID THERAPY
     Dosage: ROUTE: CP
     Dates: start: 2012
  3. TOLEXINE [Concomitant]
     Indication: TOOTH DISORDER
     Dosage: ROUTE: CP
     Dates: start: 2012
  4. XANAX [Concomitant]
     Indication: ANXIETY
     Dates: start: 2012
  5. OXYNORM [Concomitant]
     Indication: PAIN
     Dates: start: 2012
  6. LAROXYL [Concomitant]
     Indication: ANTIDEPRESSANT THERAPY
     Dates: start: 2012
  7. TINZAPARIN SODIUM [Concomitant]
     Indication: DRUG THERAPY
     Dates: start: 2012

REACTIONS (3)
  - Dysphagia [Not Recovered/Not Resolved]
  - Dyspnoea [Not Recovered/Not Resolved]
  - Face oedema [Not Recovered/Not Resolved]
